FAERS Safety Report 8863613 (Version 1)
Quarter: 2012Q4

REPORT INFORMATION
  Report Type: 
  Country: US (occurrence: US)
  Receive Date: 20121024
  Receipt Date: 20121024
  Transmission Date: 20130627
  Serious: No
  Sender: FDA-Public Use
  Company Number: US-AMGEN-USASP2011063211

PATIENT
  Age: 70 Year
  Sex: Female

DRUGS (13)
  1. ENBREL [Suspect]
  2. PROAIR HFA [Concomitant]
  3. ADVAIR HFA [Concomitant]
  4. VITAMIN D /00107901/ [Concomitant]
     Dosage: 1000 IU, UNK
  5. SIMVASTATIN [Concomitant]
     Dosage: 10 mg, UNK
  6. OXYCONTIN [Concomitant]
     Dosage: 10 mg, UNK
  7. NITROGLYCERIN [Concomitant]
     Dosage: .4 mg, UNK
     Route: 060
  8. TERBUTALINE [Concomitant]
     Dosage: 2.5 mg, UNK
  9. CARISOPRODOL [Concomitant]
     Dosage: 250 mg, UNK
  10. ZYRTEC [Concomitant]
     Dosage: 5 mg, UNK
  11. PRILOSEC                           /00661201/ [Concomitant]
     Dosage: 10 mg, UNK
  12. METHOTREXATE [Concomitant]
     Dosage: 2.5 mg, UNK
  13. VERAPAMIL [Concomitant]
     Dosage: 120 mg, UNK

REACTIONS (1)
  - Sinusitis [Unknown]
